FAERS Safety Report 20804809 (Version 6)
Quarter: 2022Q4

REPORT INFORMATION
  Report Type: Spontaneous
  Country: US (occurrence: US)
  Receive Date: 20220509
  Receipt Date: 20221222
  Transmission Date: 20230113
  Serious: Yes (Other)
  Sender: FDA-Public Use
  Company Number: US-PFIZER INC-202200641760

PATIENT
  Age: 73 Year
  Sex: Female

DRUGS (1)
  1. IBRANCE [Suspect]
     Active Substance: PALBOCICLIB
     Dosage: 100 MG, CYCLIC (21 DAYS AND THEN WAIT 7 DAYS)
     Route: 048

REACTIONS (7)
  - Weight increased [Unknown]
  - Neoplasm progression [Unknown]
  - Metabolic disorder [Unknown]
  - Dry skin [Unknown]
  - Abdominal discomfort [Unknown]
  - Irritable bowel syndrome [Unknown]
  - White blood cell count decreased [Unknown]

NARRATIVE: CASE EVENT DATE: 20220101
